FAERS Safety Report 9271699 (Version 2)
Quarter: 2013Q4

REPORT INFORMATION
  Report Type: Spontaneous
  Country: GB (occurrence: GB)
  Receive Date: 20130506
  Receipt Date: 20131106
  Transmission Date: 20140711
  Serious: Yes (Other)
  Sender: FDA-Public Use
  Company Number: GB-AMGEN-GBRSP2013030478

PATIENT
  Age: 56 Year
  Sex: Female
  Weight: 57 kg

DRUGS (2)
  1. PROLIA [Suspect]
     Indication: OSTEOPOROSIS
     Dosage: 60 MG, UNK
     Route: 058
     Dates: start: 20120808, end: 201303
  2. NAPROXEN [Concomitant]
     Indication: BACK PAIN
     Route: 048

REACTIONS (8)
  - Eye swelling [Recovering/Resolving]
  - Blepharitis [Recovering/Resolving]
  - Rash erythematous [Recovering/Resolving]
  - Rash pruritic [Recovering/Resolving]
  - Skin exfoliation [Recovering/Resolving]
  - Rash generalised [Recovering/Resolving]
  - Cystitis [Recovering/Resolving]
  - Swelling face [Recovering/Resolving]
